FAERS Safety Report 8780920 (Version 3)
Quarter: 2013Q1

REPORT INFORMATION
  Report Type: Report from Study
  Country: US (occurrence: US)
  Receive Date: 20120913
  Receipt Date: 20130204
  Transmission Date: 20140127
  Serious: Yes (Death)
  Sender: FDA-Public Use
  Company Number: US-MPIJNJ-2012-06393

PATIENT
  Age: 62 Year
  Sex: Female
  Weight: 98.7 kg

DRUGS (5)
  1. VELCADE [Suspect]
     Indication: ACUTE MYELOID LEUKAEMIA RECURRENT
     Dosage: 2.8 MG, CYCLIC
     Route: 040
     Dates: start: 20120811, end: 20120820
  2. MITOXANTRONE [Suspect]
     Indication: ACUTE MYELOID LEUKAEMIA RECURRENT
     Dosage: 12.78 MG, CYCLIC
     Route: 042
     Dates: start: 20120810, end: 20120815
  3. ETOPOSIDE [Suspect]
     Indication: ACUTE MYELOID LEUKAEMIA RECURRENT
     Dosage: 17.04 MG, CYCLIC
     Route: 042
     Dates: start: 20120810, end: 20120815
  4. CYTARABINE [Suspect]
     Indication: ACUTE MYELOID LEUKAEMIA RECURRENT
     Dosage: 2130 MG, CYCLIC
     Route: 042
     Dates: start: 20120810, end: 20120815
  5. CYTARABINE [Suspect]
     Dosage: 6300 MG, BID
     Route: 042
     Dates: start: 20120821, end: 20120827

REACTIONS (3)
  - Fungaemia [Fatal]
  - Febrile neutropenia [Fatal]
  - Septic shock [Fatal]
